FAERS Safety Report 16544588 (Version 1)
Quarter: 2019Q3

REPORT INFORMATION
  Report Type: Spontaneous
  Country: US (occurrence: US)
  Receive Date: 20190709
  Receipt Date: 20190709
  Transmission Date: 20191004
  Serious: No
  Sender: FDA-Public Use
  Company Number: US-C B FLEET CO INC-201901-US-000077

PATIENT

DRUGS (1)
  1. NIX COMPLETE MAXIMUM STRENGTH LICE ELIMINATION [Suspect]
     Active Substance: PERMETHRIN
     Indication: ACARODERMATITIS
     Dosage: UNKNOWN DOSE
     Route: 061

REACTIONS (3)
  - Skin exfoliation [Not Recovered/Not Resolved]
  - Product use in unapproved indication [None]
  - Inappropriate schedule of product administration [None]
